FAERS Safety Report 22349975 (Version 1)
Quarter: 2023Q2

REPORT INFORMATION
  Report Type: Spontaneous
  Country: US (occurrence: None)
  Receive Date: 20230519
  Receipt Date: 20230519
  Transmission Date: 20230722
  Serious: Yes (Other)
  Sender: FDA-Public Use
  Company Number: None

PATIENT
  Age: 27 Year
  Sex: Male
  Weight: 134 kg

DRUGS (1)
  1. VENLAFAXINE [Suspect]
     Active Substance: VENLAFAXINE HYDROCHLORIDE
     Indication: Post-traumatic stress disorder
     Dosage: FREQUENCY : DAILY;?
     Route: 048
     Dates: start: 20230514, end: 20230516

REACTIONS (2)
  - Swollen tongue [None]
  - Respiratory disorder [None]

NARRATIVE: CASE EVENT DATE: 20230518
